FAERS Safety Report 13856905 (Version 1)
Quarter: 2017Q3

REPORT INFORMATION
  Report Type: Spontaneous
  Country: US (occurrence: US)
  Receive Date: 20170810
  Receipt Date: 20170810
  Transmission Date: 20171127
  Serious: No
  Sender: FDA-Public Use
  Company Number: US-ROCHE-1183271

PATIENT
  Age: 1 Year
  Sex: Female
  Weight: 9.5 kg

DRUGS (1)
  1. TAMIFLU [Suspect]
     Active Substance: OSELTAMIVIR PHOSPHATE
     Indication: INFLUENZA
     Dosage: 6 MG/ML
     Route: 048
     Dates: start: 20130116, end: 20130118

REACTIONS (6)
  - Muscle spasticity [Recovered/Resolved]
  - Muscle rigidity [Recovered/Resolved]
  - Muscle tightness [Recovered/Resolved]
  - Moaning [Recovered/Resolved]
  - Irritability [Recovered/Resolved]
  - Crying [Recovered/Resolved]

NARRATIVE: CASE EVENT DATE: 20130118
